FAERS Safety Report 20152704 (Version 1)
Quarter: 2021Q4

REPORT INFORMATION
  Report Type: Other
  Country: DK (occurrence: None)
  Receive Date: 20211206
  Receipt Date: 20211206
  Transmission Date: 20220303
  Serious: Yes (Other)
  Sender: FDA-Public Use
  Company Number: DK-ROCHE-2954597

PATIENT

DRUGS (1)
  1. TECENTRIQ [Suspect]
     Active Substance: ATEZOLIZUMAB
     Indication: Product used for unknown indication
     Route: 041

REACTIONS (2)
  - Lung disorder [Unknown]
  - Pulmonary function test decreased [Unknown]

NARRATIVE: CASE EVENT DATE: 20210512
